FAERS Safety Report 4802620-9 (Version None)
Quarter: 2005Q4

REPORT INFORMATION
  Report Type: 
  Country: None (occurrence: None)
  Receive Date: 20051014
  Receipt Date: 20050321
  Transmission Date: 20060501
  Serious: Yes (Other)
  Sender: FDA-Public Use
  Company Number: 2005047803

PATIENT
  Sex: Female

DRUGS (2)
  1. NEURONTIN [Suspect]
     Indication: NEUROPATHY
  2. ANTIBIOTICS (ANTIBIOTICS) [Suspect]
     Indication: ILL-DEFINED DISORDER

REACTIONS (2)
  - BLINDNESS [None]
  - DIARRHOEA [None]
